FAERS Safety Report 8954536 (Version 1)
Quarter: 2012Q4

REPORT INFORMATION
  Report Type: Spontaneous
  Country: US (occurrence: None)
  Receive Date: 20121205
  Receipt Date: 20121205
  Transmission Date: 20130627
  Serious: Yes (Other)
  Sender: FDA-Public Use
  Company Number: None

PATIENT
  Age: 83 Year
  Sex: Male

DRUGS (2)
  1. KEPPRA [Suspect]
     Indication: CEREBRAL DISORDER
     Dosage: 500 MG 2 TIMES DAY
     Dates: start: 20121010
  2. EDARBI [Suspect]

REACTIONS (2)
  - Faeces hard [None]
  - Unevaluable event [None]
